FAERS Safety Report 8590660-6 (Version None)
Quarter: 2012Q3

REPORT INFORMATION
  Report Type: 
  Country: None (occurrence: None)
  Receive Date: 20120813
  Receipt Date: 20120806
  Transmission Date: 20120928
  Serious: Yes (Hospitalization)
  Sender: FDA-Public Use
  Company Number: BE-UCBSA-063321

PATIENT
  Age: 79 Year
  Sex: Female

DRUGS (18)
  1. FRAXIPARINE [Concomitant]
     Dosage: TOTAL DOSE:3800 IU
     Route: 058
     Dates: start: 20120618
  2. POTASSIUM CHLORIDE [Concomitant]
  3. RELAXINE [Concomitant]
     Dosage: DAILY DOSE:500 MG
     Dates: start: 20120702, end: 20120702
  4. TRADONAL RETARD [Concomitant]
     Dosage: DAILY DOSE:150 MG
     Dates: start: 20120622, end: 20120711
  5. CLINDAMYCIN HCL [Concomitant]
     Dates: start: 20120710, end: 20120717
  6. ACETAMINOPHEN [Concomitant]
     Dosage: DAILY DOSE:1 G
     Route: 048
     Dates: start: 20120618
  7. MOVIPREP [Concomitant]
     Dosage: 1 DOSE
     Dates: start: 20120621
  8. LORAZEPAM [Concomitant]
     Dosage: UNKNOWN DOSE
     Dates: end: 20120101
  9. DURAGESIC-100 [Concomitant]
     Dosage: UNKNOWN DOSE
     Dates: end: 20120101
  10. XYZAL [Suspect]
     Indication: TOXIC SKIN ERUPTION
     Route: 048
     Dates: start: 20120710, end: 20120712
  11. AMLODIPINE [Concomitant]
     Dosage: DAILY DOSE:10 MG
     Dates: start: 20120702
  12. TRAMADOL HCL [Concomitant]
     Route: 048
     Dates: start: 20120621, end: 20120712
  13. FOLIC ACID [Concomitant]
     Dosage: DAILY DOSE:4 MG
     Dates: start: 20120606
  14. BISOPROLOL [Concomitant]
     Dosage: DAILY DOSE:10 MG
     Dates: start: 20120605
  15. AMOXICILLIN TRIHYDRATE [Concomitant]
     Dates: start: 20120629, end: 20120710
  16. LASIX [Concomitant]
     Dosage: DAILY DOSE:40 MG
     Dates: start: 20120706
  17. MOTILIUM [Concomitant]
     Dosage: DAILY DOSE:10 MG
     Dates: start: 20120621, end: 20120712
  18. COZAAR [Concomitant]
     Dosage: UNKNOWN DOSE

REACTIONS (1)
  - HALLUCINATION [None]
